FAERS Safety Report 6862148-1 (Version None)
Quarter: 2010Q3

REPORT INFORMATION
  Report Type: 
  Country: None (occurrence: None)
  Receive Date: 20100721
  Receipt Date: 20100707
  Transmission Date: 20110219
  Serious: Yes (Other)
  Sender: FDA-Public Use
  Company Number: PHHY2010MX44965

PATIENT
  Sex: Female

DRUGS (2)
  1. DIOVAN [Suspect]
     Dosage: 1 TABLET (160 MG) DAILY
     Route: 048
     Dates: start: 20100505, end: 20100706
  2. NIFEDIPINE [Concomitant]
     Dosage: 2 TABLETS DAILY

REACTIONS (1)
  - BLOOD PRESSURE INCREASED [None]
